FAERS Safety Report 8324934-0 (Version None)
Quarter: 2012Q2

REPORT INFORMATION
  Report Type: 
  Country: None (occurrence: None)
  Receive Date: 20120501
  Receipt Date: 20120424
  Transmission Date: 20120825
  Serious: Yes (Other)
  Sender: FDA-Public Use
  Company Number: US-ASTELLAS-2012US004163

PATIENT
  Sex: Male

DRUGS (2)
  1. TARCEVA [Suspect]
     Indication: METASTATIC BRONCHIAL CARCINOMA
     Dosage: 150 MG, UNKNOWN/D
     Route: 048
     Dates: start: 20110701
  2. ZOMETA [Suspect]
     Indication: METASTASES TO BONE
     Dosage: Q4W
     Route: 065
     Dates: start: 20110701

REACTIONS (1)
  - VISUAL ACUITY REDUCED [None]
